FAERS Safety Report 8575866-4 (Version None)
Quarter: 2012Q3

REPORT INFORMATION
  Report Type: 
  Country: None (occurrence: None)
  Receive Date: 20120807
  Receipt Date: 20120117
  Transmission Date: 20120928
  Serious: No
  Sender: FDA-Public Use
  Company Number: US-009507513-1208USA002255

PATIENT

DRUGS (1)
  1. CLARITIN [Suspect]
     Indication: OROPHARYNGEAL PAIN
     Dosage: UNK, UNKNOWN
     Route: 048

REACTIONS (3)
  - NO ADVERSE EVENT [None]
  - BREAST FEEDING [None]
  - OFF LABEL USE [None]
